FAERS Safety Report 9042413 (Version 1)
Quarter: 2013Q1

REPORT INFORMATION
  Report Type: Report from Study
  Country: US (occurrence: US)
  Receive Date: 20130129
  Receipt Date: 20130129
  Transmission Date: 20140127
  Serious: No
  Sender: FDA-Public Use
  Company Number: US-ABBOTT-12P-163-0908439-00

PATIENT
  Sex: Female
  Weight: 68.1 kg

DRUGS (7)
  1. HUMIRA 40 MG/0.8 ML PEN [Suspect]
     Indication: RHEUMATOID ARTHRITIS
     Dates: start: 200705, end: 201201
  2. HUMIRA 40 MG/0.8 ML PEN [Suspect]
     Dates: start: 201201
  3. METHOTREXATE [Concomitant]
     Indication: RHEUMATOID ARTHRITIS
  4. RELAFEN [Concomitant]
     Indication: GASTROOESOPHAGEAL REFLUX DISEASE
  5. VICODIN [Concomitant]
     Indication: PAIN
  6. FOLIC ACID [Concomitant]
     Indication: RHEUMATOID ARTHRITIS
  7. NITROGLYCERINE [Concomitant]
     Indication: CHEST PAIN

REACTIONS (2)
  - Rheumatoid arthritis [Recovering/Resolving]
  - Gait disturbance [Recovered/Resolved]
